FAERS Safety Report 9314699 (Version 1)
Quarter: 2013Q2

REPORT INFORMATION
  Report Type: Spontaneous
  Country: US (occurrence: US)
  Receive Date: 20130529
  Receipt Date: 20130529
  Transmission Date: 20140414
  Serious: No
  Sender: FDA-Public Use
  Company Number: US-BAUSCH-BL-2012-000940

PATIENT
  Age: 73 Year
  Sex: Female

DRUGS (2)
  1. FLUOCINOLONE ACETONIDE INTRAVITREAL IMPLANT (0.5 MG) [Suspect]
     Indication: UVEITIS
     Route: 047
     Dates: start: 20100728, end: 20120912
  2. FLUOCINOLONE ACETONIDE INTRAVITREAL IMPLANT (0.5 MG) [Suspect]
     Indication: CYSTOID MACULAR OEDEMA

REACTIONS (1)
  - Device breakage [Recovered/Resolved]
